FAERS Safety Report 17632404 (Version 2)
Quarter: 2020Q3

REPORT INFORMATION
  Report Type: Report from Study
  Country: None (occurrence: US)
  Receive Date: 20200406
  Receipt Date: 20200811
  Transmission Date: 20201102
  Serious: Yes (Other)
  Sender: FDA-Public Use
  Company Number: US-ABBVIE-20K-163-3332150-00

PATIENT
  Age: 62 Year
  Sex: Female

DRUGS (1)
  1. HUMIRA [Suspect]
     Active Substance: ADALIMUMAB
     Indication: CROHN^S DISEASE
     Dosage: CITRATE FREE
     Route: 058

REACTIONS (11)
  - Intestinal resection [Unknown]
  - Joint injury [Unknown]
  - Gait disturbance [Unknown]
  - Anal fistula [Unknown]
  - Burning sensation [Unknown]
  - Fall [Unknown]
  - Insomnia [Unknown]
  - Post-traumatic pain [Unknown]
  - Hyperhidrosis [Unknown]
  - Peripheral swelling [Not Recovered/Not Resolved]
  - Pain in extremity [Not Recovered/Not Resolved]

NARRATIVE: CASE EVENT DATE: 201610
